FAERS Safety Report 9853352 (Version 1)
Quarter: 2014Q1

REPORT INFORMATION
  Report Type: Spontaneous
  Country: GB (occurrence: GB)
  Receive Date: 20140129
  Receipt Date: 20140129
  Transmission Date: 20141002
  Serious: Yes (Other)
  Sender: FDA-Public Use
  Company Number: PHHY2014GB007151

PATIENT
  Age: 80 Year
  Sex: Female
  Weight: 90 kg

DRUGS (3)
  1. OMEPRAZOLE [Suspect]
     Indication: GASTROOESOPHAGEAL REFLUX DISEASE
     Dates: start: 20100625, end: 20131101
  2. PARACETAMOL [Concomitant]
  3. LAXIDO [Concomitant]

REACTIONS (1)
  - Renal failure acute [Recovered/Resolved]
